FAERS Safety Report 4494853-9 (Version None)
Quarter: 2004Q4

REPORT INFORMATION
  Report Type: 
  Country: None (occurrence: None)
  Receive Date: 20041103
  Receipt Date: 20041018
  Transmission Date: 20050328
  Serious: Yes (Death)
  Sender: FDA-Public Use
  Company Number: 2004-DE-05367GD

PATIENT
  Age: 48 Year
  Sex: 0

DRUGS (5)
  1. ACETYLSALICYLIC ACID [Suspect]
     Dosage: PO
     Route: 048
  2. OXYCODONE HCL AND ACETAMINOPHEN [Suspect]
     Dosage: PO
     Route: 048
  3. OXYCODONE HCL AND ACETAMINOPHEN [Suspect]
  4. DIAZEPAM [Suspect]
     Dosage: PO
     Route: 048
  5. DIAZEPAM [Suspect]

REACTIONS (3)
  - CARDIO-RESPIRATORY ARREST [None]
  - COMPLETED SUICIDE [None]
  - MULTIPLE DRUG OVERDOSE [None]
